FAERS Safety Report 4507953-1 (Version None)
Quarter: 2004Q4

REPORT INFORMATION
  Report Type: 
  Country: None (occurrence: None)
  Receive Date: 20041123
  Receipt Date: 20041116
  Transmission Date: 20050328
  Serious: Yes (Other)
  Sender: FDA-Public Use
  Company Number: US-BRISTOL-MYERS SQUIBB COMPANY-12769741

PATIENT

DRUGS (1)
  1. REYATAZ [Suspect]

REACTIONS (1)
  - APLASIA PURE RED CELL [None]
